FAERS Safety Report 17872388 (Version 1)
Quarter: 2020Q2

REPORT INFORMATION
  Report Type: Spontaneous
  Country: US (occurrence: US)
  Receive Date: 20200608
  Receipt Date: 20200608
  Transmission Date: 20200714
  Serious: No
  Sender: FDA-Public Use
  Company Number: US-KALA PHARAMACEUTICALS-2020KLA00022

PATIENT
  Age: 58 Year
  Sex: Female
  Weight: 72.11 kg

DRUGS (6)
  1. TIMOLOL EYE DROPS [Concomitant]
     Route: 047
  2. PROLENSA [Concomitant]
     Active Substance: BROMFENAC SODIUM
  3. VITAMIN D [Concomitant]
     Active Substance: VITAMIN D NOS
  4. VITAMIN C [Concomitant]
     Active Substance: ASCORBIC ACID
  5. INVELTYS [Suspect]
     Active Substance: LOTEPREDNOL ETABONATE
     Indication: CATARACT OPERATION
     Dosage: 2 GTT, 1X/DAY TO RIGHT EYE
     Route: 047
     Dates: start: 201910
  6. ROCKLATAN [Concomitant]
     Active Substance: LATANOPROST\NETARSUDIL MESYLATE

REACTIONS (4)
  - Inappropriate schedule of product administration [Not Recovered/Not Resolved]
  - Product dose omission [Not Recovered/Not Resolved]
  - Incorrect product administration duration [Not Recovered/Not Resolved]
  - Ocular hyperaemia [Not Recovered/Not Resolved]

NARRATIVE: CASE EVENT DATE: 2019
